FAERS Safety Report 11885840 (Version 1)
Quarter: 2016Q1

REPORT INFORMATION
  Report Type: Spontaneous
  Country: TR (occurrence: TR)
  Receive Date: 20160104
  Receipt Date: 20160104
  Transmission Date: 20160526
  Serious: Yes (Hospitalization, Other)
  Sender: FDA-Public Use
  Company Number: TR-PFIZER INC-2015455338

PATIENT
  Age: 31 Year
  Sex: Male

DRUGS (3)
  1. QUETIAPINE [Concomitant]
     Active Substance: QUETIAPINE
     Indication: SUBSTANCE USE
     Dosage: 300 MG, DAILY
  2. PREGABALIN. [Suspect]
     Active Substance: PREGABALIN
     Dosage: 25-30 CAPSULES (EQUIVALENT TO 3750-4500 MG), DAILY
     Dates: start: 2011
  3. VENLAFAXINE [Concomitant]
     Active Substance: VENLAFAXINE HYDROCHLORIDE
     Indication: SUBSTANCE USE
     Dosage: 150 MG, DAILY

REACTIONS (11)
  - Anxiety [Unknown]
  - Irritability [Unknown]
  - Drug tolerance [Unknown]
  - Insomnia [Unknown]
  - Drug abuse [Unknown]
  - Drug dependence [Unknown]
  - Hyperhidrosis [Unknown]
  - Intentional overdose [Unknown]
  - Euphoric mood [Unknown]
  - Drug withdrawal syndrome [Unknown]
  - Tremor [Unknown]

NARRATIVE: CASE EVENT DATE: 2011
